FAERS Safety Report 15440641 (Version 3)
Quarter: 2018Q4

REPORT INFORMATION
  Report Type: Spontaneous
  Country: JP (occurrence: JP)
  Receive Date: 20180928
  Receipt Date: 20181023
  Transmission Date: 20190204
  Serious: Yes (Other)
  Sender: FDA-Public Use
  Company Number: JP-PFIZER INC-2018387408

PATIENT
  Age: 50 Year
  Sex: Male

DRUGS (6)
  1. EQUA [Suspect]
     Active Substance: VILDAGLIPTIN
     Indication: DIABETES MELLITUS
     Dosage: 100 MG, DAILY
     Route: 048
     Dates: start: 20180906
  2. CELECOX [Suspect]
     Active Substance: CELECOXIB
     Dosage: UNK UNK, TWICE DAILY
     Route: 048
     Dates: start: 201809
  3. METGLUCO [Suspect]
     Active Substance: METFORMIN HYDROCHLORIDE
     Indication: DIABETES MELLITUS
     Dosage: 1500 MG, DAILY
     Route: 048
     Dates: start: 20180906, end: 20181004
  4. METGLUCO [Suspect]
     Active Substance: METFORMIN HYDROCHLORIDE
     Dosage: 2000 MG, DAILY
     Route: 048
     Dates: start: 20181004
  5. GLIMEPIRIDE. [Suspect]
     Active Substance: GLIMEPIRIDE
     Indication: DIABETES MELLITUS
     Dosage: UNK
     Route: 048
     Dates: end: 20180906
  6. EQUMET [Suspect]
     Active Substance: METFORMIN HYDROCHLORIDE\VILDAGLIPTIN
     Indication: DIABETES MELLITUS
     Dosage: UNK
     Route: 048
     Dates: end: 20180906

REACTIONS (1)
  - Internal haemorrhage [Recovered/Resolved]

NARRATIVE: CASE EVENT DATE: 201809
